FAERS Safety Report 4345593-8 (Version None)
Quarter: 2004Q2

REPORT INFORMATION
  Report Type: 
  Country: None (occurrence: None)
  Receive Date: 20040421
  Receipt Date: 20040409
  Transmission Date: 20050107
  Serious: Yes (Other)
  Sender: FDA-Public Use
  Company Number: NSADSS2003016538

PATIENT
  Age: 57 Year
  Sex: Female
  Weight: 68.9467 kg

DRUGS (17)
  1. REMICADE [Suspect]
     Indication: RHEUMATOID ARTHRITIS
     Dosage: SEE IMAGE
     Route: 041
     Dates: start: 20020521, end: 20030301
  2. REMICADE [Suspect]
     Indication: RHEUMATOID ARTHRITIS
     Dosage: SEE IMAGE
     Route: 041
     Dates: start: 20000101
  3. VIOXX [Suspect]
     Dosage: 25 MG PER DAY
  4. METHOTREXATE SODIUM [Concomitant]
  5. LEVOXYL [Concomitant]
  6. DICYCLOMINE [Concomitant]
  7. ZOLOFT [Concomitant]
  8. PREMARIN [Concomitant]
  9. FOLIC ACID [Concomitant]
  10. MVI (MULTIVITAMINS) [Concomitant]
  11. VITAMIN C (ASCORBIC ACID) [Concomitant]
  12. VITAMIN B6 [Concomitant]
  13. VITAMIN E [Concomitant]
  14. CALCIUM WITH D (CALCIUM WITH VITAMIN D) [Concomitant]
  15. GLUCOSAMINE/CHONDROITIN (GLUCOSAMINE W/CHONDROITIN SULFATES) [Concomitant]
  16. BENTYL [Concomitant]
  17. MEDROL [Concomitant]

REACTIONS (16)
  - DEMYELINATION [None]
  - DEPRESSED LEVEL OF CONSCIOUSNESS [None]
  - DYSPNOEA [None]
  - FALL [None]
  - GLIOMA [None]
  - HEAD INJURY [None]
  - HOFFMANN'S SIGN [None]
  - HYPOAESTHESIA [None]
  - LOSS OF CONSCIOUSNESS [None]
  - MEDICATION ERROR [None]
  - NEUROPATHY PERIPHERAL [None]
  - PARAESTHESIA [None]
  - SELF-MEDICATION [None]
  - SENSATION OF BLOCK IN EAR [None]
  - TINNITUS [None]
  - VISION BLURRED [None]
